FAERS Safety Report 17689976 (Version 2)
Quarter: 2020Q2

REPORT INFORMATION
  Report Type: Report from Study
  Country: TR (occurrence: TR)
  Receive Date: 20200421
  Receipt Date: 20200422
  Transmission Date: 20200714
  Serious: Yes (Death, Hospitalization)
  Sender: FDA-Public Use
  Company Number: TR-EISAI MEDICAL RESEARCH-EC-2020-072002

PATIENT
  Age: 61 Year
  Sex: Male
  Weight: 47 kg

DRUGS (12)
  1. KEPPRA [Concomitant]
     Active Substance: LEVETIRACETAM
     Dates: start: 20191211
  2. PEMBROLIZUMAB. [Suspect]
     Active Substance: PEMBROLIZUMAB
     Route: 041
     Dates: start: 20191225, end: 20191225
  3. CARBOPLATIN. [Suspect]
     Active Substance: CARBOPLATIN
     Dosage: REDUCED DOSE (DOSE UNKNOWN)
     Route: 042
     Dates: start: 20200114
  4. PEMETREXED. [Suspect]
     Active Substance: PEMETREXED
     Dosage: REDUCE DOSE (DOSE UNKNOWN)
     Route: 042
     Dates: start: 20200114
  5. LENVATINIB [Suspect]
     Active Substance: LENVATINIB
     Indication: SMALL CELL LUNG CANCER METASTATIC
     Route: 048
     Dates: start: 20191101
  6. PEMBROLIZUMAB. [Suspect]
     Active Substance: PEMBROLIZUMAB
     Indication: NON-SMALL CELL LUNG CANCER METASTATIC
     Route: 041
     Dates: start: 20191101, end: 20191122
  7. PEMETREXED. [Suspect]
     Active Substance: PEMETREXED
     Route: 042
     Dates: start: 20191225, end: 20191225
  8. PEMBROLIZUMAB. [Suspect]
     Active Substance: PEMBROLIZUMAB
     Route: 041
     Dates: start: 20200114
  9. PEMETREXED. [Suspect]
     Active Substance: PEMETREXED
     Indication: NON-SMALL CELL LUNG CANCER METASTATIC
     Route: 042
     Dates: start: 20191101, end: 20191122
  10. CARBOPLATIN. [Suspect]
     Active Substance: CARBOPLATIN
     Dosage: AREA UNDER CURVE (AUC) 5MG/ML/MIN
     Route: 042
     Dates: start: 20191225, end: 20191225
  11. FOLBIOL [Concomitant]
     Active Substance: FOLIC ACID
     Dates: start: 20191031
  12. CARBOPLATIN. [Suspect]
     Active Substance: CARBOPLATIN
     Indication: NON-SMALL CELL LUNG CANCER METASTATIC
     Dosage: AREA UNDER CURVE (AUC) 5MG/ML/MIN
     Route: 042
     Dates: start: 20191101, end: 20191122

REACTIONS (1)
  - Weight decreased [Recovering/Resolving]

NARRATIVE: CASE EVENT DATE: 20191225
